FAERS Safety Report 22284561 (Version 1)
Quarter: 2023Q2

REPORT INFORMATION
  Report Type: Spontaneous
  Country: US (occurrence: US)
  Receive Date: 20230504
  Receipt Date: 20230504
  Transmission Date: 20230721
  Serious: No
  Sender: FDA-Public Use
  Company Number: US-BRISTOL-MYERS SQUIBB COMPANY-2023-062822

PATIENT
  Age: 63 Year
  Sex: Male

DRUGS (3)
  1. OPDIVO [Suspect]
     Active Substance: NIVOLUMAB
     Indication: Neoplasm malignant
     Dosage: EVERY 21 DAYS
     Route: 042
  2. OPDIVO [Suspect]
     Active Substance: NIVOLUMAB
     Dosage: 480 MG EVERY 4 WEEKS
     Route: 042
  3. YERVOY [Suspect]
     Active Substance: IPILIMUMAB
     Indication: Neoplasm malignant
     Dates: end: 20230221

REACTIONS (1)
  - Off label use [Unknown]
